FAERS Safety Report 19239983 (Version 2)
Quarter: 2021Q2

REPORT INFORMATION
  Report Type: Other
  Country: AT (occurrence: AT)
  Receive Date: 20210511
  Receipt Date: 20210520
  Transmission Date: 20210717
  Serious: Yes (Hospitalization)
  Sender: FDA-Public Use
  Company Number: AT-CELLTRION INC.-2021AT006093

PATIENT

DRUGS (21)
  1. TRASTUZUMAB (UNKNOWN) [Suspect]
     Active Substance: TRASTUZUMAB
     Indication: BREAST CANCER
     Dosage: 600 MG EVERY 3 WEEKS (MOST RECENT DOSE PRIOR TO THE EVENT: 19/FEB/2020)PHARMACETICAL DOSE FORM: INFU
     Route: 042
     Dates: start: 20180328, end: 20180328
  2. CAL D VITA [Concomitant]
     Dosage: UNK (ONGOING = NOT CHECKED)
     Dates: start: 20190425
  3. CYCLOPHOSPHAMIDE. [Suspect]
     Active Substance: CYCLOPHOSPHAMIDE
     Indication: BREAST CANCER
     Dosage: 50 MILLIGRAM, QD (MOST RECENT DOSE ON 09/MAR/2020)
     Route: 048
     Dates: start: 20200219
  4. TRASTUZUMAB EMTANSINE [Suspect]
     Active Substance: ADO-TRASTUZUMAB EMTANSINE
     Indication: BREAST CANCER
     Dosage: 230.4 MILLIGRAM EVERY 3 WEEKS (MOST RECENT DOSE PRIOR TO THE EVENT: 28/JUN/2019)
     Route: 042
     Dates: start: 20190131
  5. HYDAL [Concomitant]
     Active Substance: HYDROMORPHONE HYDROCHLORIDE
     Dosage: UNK (ONGOING = NOT CHECKED)
     Dates: start: 20200228, end: 20200311
  6. HYDAL [Concomitant]
     Active Substance: HYDROMORPHONE HYDROCHLORIDE
     Dosage: UNK (ONGOING = NOT CHECKED)
     Dates: start: 20200228, end: 20200410
  7. NERATINIB [Suspect]
     Active Substance: NERATINIB
     Indication: BREAST CANCER
     Dosage: 1440 MILLIGRAM, QD (MOST RECENT DOSE ON 18/JAN/2020)
     Route: 048
     Dates: start: 20200108
  8. ZOFRAN [Concomitant]
     Active Substance: ONDANSETRON HYDROCHLORIDE
     Dosage: UNK (ONGOING = NOT CHECKED)
     Dates: start: 20200309, end: 20200410
  9. XGEVA [Concomitant]
     Active Substance: DENOSUMAB
     Dosage: UNK (ONGOING = NOT CHECKED)
     Dates: start: 20191219, end: 20200410
  10. CAPECITABINE. [Suspect]
     Active Substance: CAPECITABINE
     Indication: BREAST CANCER
     Dosage: 500 MILLIGRAM (FREQUENCY: OTHER MOST RECENT DOSE PRIOR TO THE EVENT: 19/DEC/2019)
     Route: 048
     Dates: start: 20191126
  11. NOVALGINA [Concomitant]
     Active Substance: METAMIZOLE SODIUM
     Dosage: UNK (ONGOING = NOT CHECKED)
     Dates: start: 20200224, end: 20200410
  12. VINORELBINE [Suspect]
     Active Substance: VINORELBINE TARTRATE
     Indication: BREAST CANCER
     Dosage: 50 MG
     Route: 048
     Dates: start: 20191011, end: 20191025
  13. PACLITAXEL. [Suspect]
     Active Substance: PACLITAXEL
     Indication: BREAST CANCER
     Dosage: 177.17 MILLIGRAM, EVERY 1 WEEK (MOST RECENT DOSE PRIOR TO AE 07/DEC/2018)PHARMACEUTICAL DOSAGE FORM:
     Route: 042
     Dates: start: 20180416
  14. HYDAL [Concomitant]
     Active Substance: HYDROMORPHONE HYDROCHLORIDE
     Dosage: UNK (ONGOING = NOT CHECKED)
     Dates: start: 20200311, end: 20200410
  15. OCTENISEPT GEL [Concomitant]
     Indication: ONYCHOLYSIS
     Dosage: UNK (ONGOING = NOT CHECKED)
     Dates: start: 20180725
  16. PANTOLOC [PANTOPRAZOLE] [Concomitant]
     Active Substance: PANTOPRAZOLE SODIUM
     Dosage: UNK (ONGOING = NOT CHECKED)
     Dates: start: 20191011, end: 20200410
  17. TRASTUZUMAB (UNKNOWN) [Suspect]
     Active Substance: TRASTUZUMAB
     Dosage: 600 MG EVERY 3 WEEKS (MOST RECENT DOSE PRIOR TO THE EVENT: 19/FEB/2020) PHARMACEUTICAL DOSAGE FORM:
     Route: 042
     Dates: start: 20180328
  18. PERTUZUMAB. [Suspect]
     Active Substance: PERTUZUMAB
     Indication: BREAST CANCER
     Dosage: 840 MILLIGRAM EVERY 3 WEEKS (MOST RECENT DOSE PRIOR TO THE EVENT: 23/APR/2018)
     Route: 042
     Dates: start: 20180328
  19. METHOTREXATE. [Suspect]
     Active Substance: METHOTREXATE
     Indication: BREAST CANCER
     Dosage: 2.5 MILLIGRAM, EVERY 0.5 WEEK (MOST RECENT DOSE ON 09/MAR/2020); PHARMACEUTICAL DOSAGE FORM: UNKNOWN
     Route: 048
     Dates: start: 20200219
  20. PACLITAXEL. [Suspect]
     Active Substance: PACLITAXEL
     Dosage: 147.76 MILLIGRAM, EVERY 1 WEEK (MOST RECENT DOSE ON 09/APR/2018)PHARMACEUTICAL DOSAGE FORM: UNKNOWN
     Route: 042
     Dates: start: 20180328
  21. BEPANTHENE [Concomitant]
     Active Substance: DEXPANTHENOL
     Indication: CONJUNCTIVITIS
     Dosage: UNK (ONGOING = NOT CHECKED)
     Dates: start: 20180619

REACTIONS (3)
  - C-reactive protein increased [Recovered/Resolved]
  - Overdose [Unknown]
  - Dyspnoea [Recovered/Resolved]

NARRATIVE: CASE EVENT DATE: 20200309
